FAERS Safety Report 8950350 (Version 1)
Quarter: 2012Q4

REPORT INFORMATION
  Report Type: Spontaneous
  Country: US (occurrence: None)
  Receive Date: 20121130
  Receipt Date: 20121130
  Transmission Date: 20130627
  Serious: Yes (Death)
  Sender: FDA-Public Use
  Company Number: None

PATIENT

DRUGS (3)
  1. LOVENOX [Suspect]
     Indication: ATRIAL FIBRILLATION
     Dosage: 2 Doses
     Route: 058
  2. PRADAXA [Suspect]
     Dosage: 3 doses
     Route: 048
  3. ASPIRIN [Concomitant]

REACTIONS (15)
  - Nausea [None]
  - Haematemesis [None]
  - Arterial haemorrhage [None]
  - Blood pressure decreased [None]
  - Prothrombin time prolonged [None]
  - International normalised ratio increased [None]
  - Anaemia [None]
  - Disseminated intravascular coagulation [None]
  - Acidosis [None]
  - Hyperkalaemia [None]
  - Hyperphosphataemia [None]
  - Peritoneal haemorrhage [None]
  - Blood creatinine increased [None]
  - Tumour lysis syndrome [None]
  - Shock [None]
